FAERS Safety Report 6916442-6 (Version None)
Quarter: 2010Q3

REPORT INFORMATION
  Report Type: 
  Country: None (occurrence: None)
  Receive Date: 20100810
  Receipt Date: 20100728
  Transmission Date: 20110219
  Serious: Yes (Hospitalization)
  Sender: FDA-Public Use
  Company Number: PHFR2010GB00527

PATIENT
  Sex: Male

DRUGS (6)
  1. CLOZARIL [Suspect]
     Indication: SCHIZOPHRENIA
     Dosage: UNK
     Route: 048
     Dates: start: 20100325
  2. CLOZARIL [Suspect]
     Dosage: 275 MG DAILY
     Dates: end: 20100414
  3. VALPROATE SODIUM [Concomitant]
     Indication: SCHIZOAFFECTIVE DISORDER
     Dosage: 2000MG DAILY
     Route: 048
  4. BENZHEXOL [Concomitant]
     Indication: EXTRAPYRAMIDAL DISORDER
     Dosage: 6MG DAILY
     Route: 048
  5. ZUCLOPENTHIXOL [Concomitant]
     Indication: PSYCHOTIC DISORDER
     Dosage: 30MG DAILY
  6. LITHIUM CARBONATE [Concomitant]
     Indication: SCHIZOAFFECTIVE DISORDER
     Dosage: 30MG DAILY
     Route: 048

REACTIONS (6)
  - CHEST DISCOMFORT [None]
  - DIARRHOEA [None]
  - LOWER RESPIRATORY TRACT INFECTION [None]
  - PYREXIA [None]
  - TACHYCARDIA [None]
  - VOMITING [None]
